FAERS Safety Report 24215412 (Version 1)
Quarter: 2024Q3

REPORT INFORMATION
  Report Type: Spontaneous
  Country: US (occurrence: US)
  Receive Date: 20240816
  Receipt Date: 20240816
  Transmission Date: 20241016
  Serious: No
  Sender: TEVA
  Company Number: US-TEVA-VS-3229261

PATIENT

DRUGS (1)
  1. ESTRADIOL [Suspect]
     Active Substance: ESTRADIOL
     Indication: Product used for unknown indication
     Dosage: STRENGTH: 10MCG
     Route: 067

REACTIONS (6)
  - Genital tract inflammation [Unknown]
  - Product substitution issue [Unknown]
  - Vulvitis [Unknown]
  - Vulval disorder [Unknown]
  - Genital discomfort [Unknown]
  - Genital erythema [Unknown]
